FAERS Safety Report 7934490-4 (Version None)
Quarter: 2011Q4

REPORT INFORMATION
  Report Type: 
  Country: None (occurrence: None)
  Receive Date: 20111122
  Receipt Date: 20111111
  Transmission Date: 20120403
  Serious: Yes (Hospitalization)
  Sender: FDA-Public Use
  Company Number: FR-GLAXOSMITHKLINE-B0764063A

PATIENT
  Sex: Male
  Weight: 92 kg

DRUGS (9)
  1. EXTENCILLINE [Concomitant]
     Indication: PRODUCT USED FOR UNKNOWN INDICATION
     Route: 030
     Dates: start: 20110906, end: 20110907
  2. ACETAMINOPHEN [Concomitant]
     Indication: BONE PAIN
  3. MELPHALAN HYDROCHLORIDE [Suspect]
     Indication: PRODUCT USED FOR UNKNOWN INDICATION
     Dosage: 18MG PER DAY
     Route: 048
     Dates: start: 20110808, end: 20110819
  4. INSULIN HUMAN [Concomitant]
     Indication: PRODUCT USED FOR UNKNOWN INDICATION
     Route: 058
     Dates: end: 20110826
  5. PREDNISONE TAB [Suspect]
     Indication: PRODUCT USED FOR UNKNOWN INDICATION
     Dosage: 120MG PER DAY
     Route: 048
     Dates: start: 20110808, end: 20110819
  6. VELCADE [Suspect]
     Indication: SYSTEMIC SCLEROSIS
     Dosage: 2.6MG PER DAY
     Route: 042
     Dates: start: 20110808, end: 20110819
  7. POLYETHYLENE GLYCOL [Concomitant]
     Indication: PRODUCT USED FOR UNKNOWN INDICATION
     Route: 048
  8. METFORMIN HCL [Concomitant]
     Indication: PRODUCT USED FOR UNKNOWN INDICATION
     Route: 048
     Dates: start: 20110906, end: 20110909
  9. FUROSEMIDE [Concomitant]
     Indication: PRODUCT USED FOR UNKNOWN INDICATION
     Route: 042

REACTIONS (2)
  - BONE PAIN [None]
  - INFECTION [None]
